FAERS Safety Report 9641898 (Version 3)
Quarter: 2014Q2

REPORT INFORMATION
  Report Type: Report from Study
  Country: JP (occurrence: JP)
  Receive Date: 20131023
  Receipt Date: 20140606
  Transmission Date: 20141212
  Serious: Yes (Death)
  Sender: FDA-Public Use
  Company Number: JP-B.I. PHARMACEUTICALS,INC./RIDGEFIELD-2013-BI-33746NB

PATIENT
  Age: 77 Year
  Sex: Male
  Weight: 75 kg

DRUGS (10)
  1. PRAZAXA [Suspect]
     Indication: CEREBROVASCULAR ACCIDENT PROPHYLAXIS
     Dosage: 220 MG
     Route: 048
     Dates: start: 20120403, end: 20130428
  2. LASIX [Concomitant]
     Dosage: 20 MG
     Route: 048
  3. RENIVACE [Concomitant]
     Dosage: 2.5 MG
     Route: 048
  4. ITOROL [Concomitant]
     Dosage: 40 MG
     Route: 048
  5. SELBEX [Concomitant]
     Indication: PROPHYLAXIS
     Dosage: 100 MG
     Route: 048
  6. ARTIST [Concomitant]
     Dosage: 5 MG
     Route: 048
  7. CRESTOR [Concomitant]
     Dosage: 5 MG
     Route: 048
  8. ZETIA [Concomitant]
     Dosage: 10 MG
     Route: 048
  9. RANITAC [Concomitant]
     Indication: PROPHYLAXIS
     Dosage: 150 MG
     Route: 048
  10. BAYASPIRIN [Concomitant]
     Indication: PROPHYLAXIS
     Dosage: 100 MG
     Route: 048

REACTIONS (1)
  - Ventricular fibrillation [Fatal]
